FAERS Safety Report 15343709 (Version 1)
Quarter: 2018Q3

REPORT INFORMATION
  Report Type: Spontaneous
  Country: US (occurrence: US)
  Receive Date: 20180903
  Receipt Date: 20180903
  Transmission Date: 20181010
  Serious: Yes (Death, Other)
  Sender: FDA-Public Use
  Company Number: US-VISTAPHARM, INC.-VER201808-000806

PATIENT
  Age: 38 Year
  Sex: Female

DRUGS (2)
  1. METOCLOPRAMIDE. [Suspect]
     Active Substance: METOCLOPRAMIDE
     Indication: GANGRENE
     Dosage: 10 MG (POST?OPERATIVELY)
     Route: 042
  2. LABETALOL [Suspect]
     Active Substance: LABETALOL\LABETALOL HYDROCHLORIDE
     Indication: GANGRENE
     Dosage: 10 MG (15 MIN PRIOR)
     Route: 042

REACTIONS (4)
  - Pulse absent [Fatal]
  - Nodal arrhythmia [Fatal]
  - Cardiac arrest [Unknown]
  - Bradyarrhythmia [Unknown]
